FAERS Safety Report 24895795 (Version 1)
Quarter: 2025Q1

REPORT INFORMATION
  Report Type: Spontaneous
  Country: US (occurrence: None)
  Receive Date: 20250128
  Receipt Date: 20250128
  Transmission Date: 20250409
  Serious: Yes (Life-Threatening, Hospitalization, Disabling)
  Sender: FDA-CTU
  Company Number: None

PATIENT
  Age: 66 Year
  Sex: Female
  Weight: 142.8 kg

DRUGS (1)
  1. SACUBITRIL\VALSARTAN [Suspect]
     Active Substance: SACUBITRIL\VALSARTAN
     Indication: Cardiac failure congestive
     Dosage: FREQUENCY : DAILY;?
     Route: 048
     Dates: start: 20241110, end: 20241208

REACTIONS (6)
  - Cardiomyopathy [None]
  - Pulmonary oedema [None]
  - Cardiogenic shock [None]
  - Metabolic encephalopathy [None]
  - Pericardial effusion [None]
  - Cardio-respiratory arrest [None]

NARRATIVE: CASE EVENT DATE: 20241208
